FAERS Safety Report 11010973 (Version 1)
Quarter: 2015Q2

REPORT INFORMATION
  Report Type: Spontaneous
  Country: DE (occurrence: DE)
  Receive Date: 20150410
  Receipt Date: 20150410
  Transmission Date: 20150821
  Serious: Yes (Life-Threatening)
  Sender: FDA-Public Use
  Company Number: DE-MYLANLABS-2015M1011919

PATIENT

DRUGS (18)
  1. TAVOR [Suspect]
     Active Substance: LORAZEPAM
     Dosage: AT NIGHT
     Route: 048
  2. NEBIVOLOL [Concomitant]
     Active Substance: NEBIVOLOL
     Route: 065
  3. ALLOPURINOL. [Concomitant]
     Active Substance: ALLOPURINOL
     Dosage: IN THE MORNING
     Route: 048
  4. FUROSEMIDE. [Concomitant]
     Active Substance: FUROSEMIDE
     Dosage: IN THE MORNING
     Route: 048
  5. ARTELAC SPLASH                     /00567501/ [Concomitant]
     Route: 047
  6. SODIUM CHLORIDE. [Concomitant]
     Active Substance: SODIUM CHLORIDE
     Dosage: 1 IN THE MORNING, 2 AT NOON, 2 IN THE EVENING
     Route: 048
  7. RIVOTRIL [Suspect]
     Active Substance: CLONAZEPAM
     Route: 048
  8. BUDES N [Concomitant]
     Active Substance: BUDESONIDE
     Dosage: IN THE MORNING AND EVENING
     Route: 055
  9. CLOPIDOGREL [Concomitant]
     Active Substance: CLOPIDOGREL BISULFATE
     Dosage: IN THE MORNING
     Route: 048
  10. RAMIPRIL. [Concomitant]
     Active Substance: RAMIPRIL
     Dosage: IN THE MORNING
     Route: 048
  11. MIRTAZAPINE. [Suspect]
     Active Substance: MIRTAZAPINE
     Dosage: AT NIGHT
     Route: 048
  12. RISPERIDONE. [Suspect]
     Active Substance: RISPERIDONE
     Dosage: AT NIGHT
     Route: 048
  13. ARTELAC                            /00002701/ [Concomitant]
     Dosage: THREE TIMES DAILY
     Route: 047
  14. DIPYRONE [Concomitant]
     Active Substance: DIPYRONE
     Route: 048
  15. XIPAMIDE [Concomitant]
     Active Substance: XIPAMIDE
     Dosage: AT NIGHT
     Route: 048
  16. KALINOR                            /00031402/ [Concomitant]
     Active Substance: POTASSIUM CITRATE
     Route: 048
  17. ZOPICLODURA [Suspect]
     Active Substance: ZOPICLONE
     Dosage: IN THE EVENING
     Route: 048
  18. PANTOPRAZOLE [Concomitant]
     Active Substance: PANTOPRAZOLE SODIUM
     Dosage: IN THE EVENING
     Route: 048

REACTIONS (5)
  - Multiple drug therapy [Recovered/Resolved]
  - Insomnia [Recovered/Resolved]
  - Affective disorder [Recovered/Resolved]
  - Confusional state [Recovered/Resolved]
  - Fatigue [Recovered/Resolved]
